FAERS Safety Report 6451318-2 (Version None)
Quarter: 2009Q4

REPORT INFORMATION
  Report Type: 
  Country: None (occurrence: None)
  Receive Date: 20091123
  Receipt Date: 20091118
  Transmission Date: 20100525
  Serious: Yes (Disabling)
  Sender: FDA-Public Use
  Company Number: JP-MERCK-0911USA02914

PATIENT
  Age: 96 Year
  Sex: Female

DRUGS (3)
  1. HYZAAR [Suspect]
     Indication: HYPERTENSION
     Route: 048
     Dates: start: 20080901, end: 20091101
  2. LASIX [Concomitant]
     Indication: CARDIAC FAILURE
     Route: 048
     Dates: start: 20080901, end: 20091101
  3. YODEL S [Concomitant]
     Indication: CONSTIPATION
     Route: 048
     Dates: start: 20080901, end: 20091101

REACTIONS (1)
  - AGEUSIA [None]
